FAERS Safety Report 9871087 (Version 1)
Quarter: 2014Q1

REPORT INFORMATION
  Report Type: Spontaneous
  Country: US (occurrence: US)
  Receive Date: 20140205
  Receipt Date: 20140205
  Transmission Date: 20141002
  Serious: No
  Sender: FDA-Public Use
  Company Number: US-GILEAD-2013-0073443

PATIENT
  Sex: Female
  Weight: 102.95 kg

DRUGS (4)
  1. STRIBILD [Suspect]
     Indication: HIV INFECTION
     Dosage: UNK
     Dates: start: 2013
  2. WELLBUTRIN [Interacting]
     Dosage: 200 MG, QD
  3. ABILIFY [Interacting]
     Dosage: 15 MG, QD
  4. LEXAPRO [Interacting]
     Dosage: 20 MG, QD

REACTIONS (1)
  - Resting tremor [Not Recovered/Not Resolved]
